FAERS Safety Report 6631023-X (Version None)
Quarter: 2010Q1

REPORT INFORMATION
  Report Type: 
  Country: None (occurrence: None)
  Receive Date: 20100309
  Receipt Date: 20100224
  Transmission Date: 20100710
  Serious: Yes (Hospitalization)
  Sender: FDA-Public Use
  Company Number: 007695

PATIENT
  Sex: Female
  Weight: 88.1 kg

DRUGS (9)
  1. CERTOLIZUMAB PEGOL [Suspect]
     Indication: RHEUMATOID ARTHRITIS
     Dosage: (400 MG 1X2 WEEKS SUBCUTANEOUS), (200 MG 1X2 WEEKS SUBCUTANEOUS), (200 MG1X2 WEEKS SUBCUTANEOUS)
     Route: 058
     Dates: start: 20090127, end: 20100121
  2. METHOTREXATE [Concomitant]
  3. FOLIC ACID [Concomitant]
  4. PREDNISONE [Concomitant]
  5. CELEBREX [Concomitant]
  6. LISINOPRIL [Concomitant]
  7. METFORMIN HCL [Concomitant]
  8. ASPIRIN [Concomitant]
  9. ELAVIL [Concomitant]

REACTIONS (6)
  - ABSCESS [None]
  - CELLULITIS [None]
  - JOINT RANGE OF MOTION DECREASED [None]
  - SCRATCH [None]
  - STAPHYLOCOCCAL INFECTION [None]
  - STREPTOCOCCAL INFECTION [None]
